FAERS Safety Report 9990368 (Version 1)
Quarter: 2014Q1

REPORT INFORMATION
  Report Type: Report from Study
  Country: US (occurrence: US)
  Receive Date: 20140310
  Receipt Date: 20140310
  Transmission Date: 20141002
  Serious: No
  Sender: FDA-Public Use
  Company Number: US-ABBVIE-13P-163-1133915-00

PATIENT
  Age: 60 Year
  Sex: Female

DRUGS (9)
  1. HUMIRA [Suspect]
     Indication: CROHN^S DISEASE
     Dates: start: 20130716, end: 20130716
  2. HUMIRA [Suspect]
     Dosage: DAY
     Dates: start: 20130730, end: 20130730
  3. HUMIRA [Suspect]
     Dates: start: 20130813
  4. PRILOSEC [Concomitant]
     Indication: GASTROINTESTINAL DISORDER
  5. IMURAN [Concomitant]
     Indication: CROHN^S DISEASE
     Dosage: 100 MG DAILY
  6. POTASSIUM [Concomitant]
     Indication: BLOOD POTASSIUM DECREASED
  7. LASIX [Concomitant]
     Indication: JOINT SWELLING
     Dosage: 40 MG DAILY
  8. MULTIVITAMIN [Concomitant]
     Indication: PRODUCT USED FOR UNKNOWN INDICATION
     Dosage: DAILY
  9. FISH OIL [Concomitant]
     Indication: PRODUCT USED FOR UNKNOWN INDICATION
     Dosage: DAILY

REACTIONS (5)
  - Sensation of pressure [Not Recovered/Not Resolved]
  - Myalgia [Not Recovered/Not Resolved]
  - Mobility decreased [Not Recovered/Not Resolved]
  - Photosensitivity reaction [Not Recovered/Not Resolved]
  - Injection site bruising [Recovering/Resolving]
